FAERS Safety Report 18004590 (Version 1)
Quarter: 2020Q3

REPORT INFORMATION
  Report Type: Spontaneous
  Country: US (occurrence: US)
  Receive Date: 20200710
  Receipt Date: 20200710
  Transmission Date: 20201103
  Serious: Yes (Death)
  Sender: FDA-Public Use
  Company Number: US-COHERUS BIOSCIENCES, INC-2020US003535

PATIENT

DRUGS (2)
  1. UDENYCA [Suspect]
     Active Substance: PEGFILGRASTIM-CBQV
     Dosage: UNK
     Dates: start: 20200521
  2. UDENYCA [Suspect]
     Active Substance: PEGFILGRASTIM-CBQV
     Indication: PRODUCT USED FOR UNKNOWN INDICATION
     Dosage: UNK
     Dates: start: 20200430

REACTIONS (1)
  - Death [Fatal]

NARRATIVE: CASE EVENT DATE: 20200618
